FAERS Safety Report 6437056-0 (Version None)
Quarter: 2009Q4

REPORT INFORMATION
  Report Type: 
  Country: None (occurrence: None)
  Receive Date: 20091112
  Receipt Date: 20091104
  Transmission Date: 20100525
  Serious: Yes (Hospitalization)
  Sender: FDA-Public Use
  Company Number: DE-ALLERGAN-0915302US

PATIENT
  Age: 67 Year
  Sex: Female

DRUGS (2)
  1. BIMATOPROST 0.03%;TIMOLOL 0.5% SOL [Suspect]
     Indication: GLAUCOMA
     Dosage: 1 GTT, QD
     Route: 047
     Dates: start: 20080731, end: 20090212
  2. BETA BLOCKING AGENTS [Concomitant]
     Indication: HYPERTENSION
     Route: 048

REACTIONS (1)
  - CARDIOVASCULAR DISORDER [None]
